FAERS Safety Report 6970348-5 (Version None)
Quarter: 2010Q3

REPORT INFORMATION
  Report Type: 
  Country: None (occurrence: None)
  Receive Date: 20100903
  Receipt Date: 20091111
  Transmission Date: 20110219
  Serious: Yes (Hospitalization, Other)
  Sender: FDA-Public Use
  Company Number: 2009SP036144

PATIENT
  Age: 39 Year
  Sex: Female
  Weight: 83.9154 kg

DRUGS (5)
  1. NUVARING [Suspect]
     Indication: CONTRACEPTION
     Dates: start: 20050701, end: 20071114
  2. LEVOXYL [Concomitant]
  3. MS CONTIN [Concomitant]
  4. NEURONTIN [Concomitant]
  5. BACLOFEN [Concomitant]

REACTIONS (22)
  - ABORTION INDUCED [None]
  - ANXIETY DISORDER [None]
  - CARDIAC ANEURYSM [None]
  - CARDIAC MURMUR [None]
  - CARDIOMEGALY [None]
  - CAROTID ARTERY STENOSIS [None]
  - DILATATION VENTRICULAR [None]
  - DRUG EXPOSURE DURING PREGNANCY [None]
  - ECHOCARDIOGRAM ABNORMAL [None]
  - FLUID OVERLOAD [None]
  - HAEMATURIA [None]
  - INFARCTION [None]
  - MITRAL VALVE INCOMPETENCE [None]
  - PULMONARY ARTERY DILATATION [None]
  - PULMONARY EMBOLISM [None]
  - PULMONARY HYPERTENSION [None]
  - PULMONARY VALVE INCOMPETENCE [None]
  - RIGHT ATRIAL DILATATION [None]
  - SUPRAVENTRICULAR TACHYCARDIA [None]
  - SYNCOPE [None]
  - THROMBOSIS [None]
  - TRICUSPID VALVE INCOMPETENCE [None]
